FAERS Safety Report 19092993 (Version 2)
Quarter: 2022Q4

REPORT INFORMATION
  Report Type: Spontaneous
  Country: US (occurrence: US)
  Receive Date: 20210405
  Receipt Date: 20221221
  Transmission Date: 20230112
  Serious: Yes (Hospitalization, Other)
  Sender: FDA-Public Use
  Company Number: US-PFIZER INC-2020486539

PATIENT
  Age: 54 Year
  Sex: Female
  Weight: 90.703 kg

DRUGS (5)
  1. XELJANZ XR [Suspect]
     Active Substance: TOFACITINIB CITRATE
     Indication: Arthritis
     Dosage: 11 MG, 1X/DAY
     Dates: start: 2019
  2. XELJANZ XR [Suspect]
     Active Substance: TOFACITINIB CITRATE
     Dosage: 11 MG, 1X/DAY
     Dates: start: 2020
  3. FOLIC ACID [Concomitant]
     Active Substance: FOLIC ACID
     Indication: Arthritis
     Dosage: UNK
     Dates: start: 2016
  4. CYMBALTA [Concomitant]
     Active Substance: DULOXETINE HYDROCHLORIDE
     Indication: Arthritis
     Dosage: 60 MG, 1X/DAY
     Dates: start: 2007
  5. ZOLPIDEM [Concomitant]
     Active Substance: ZOLPIDEM TARTRATE
     Indication: Insomnia
     Dosage: 10 MG, 1X/DAY
     Dates: start: 2007

REACTIONS (3)
  - Chondropathy [Not Recovered/Not Resolved]
  - Gait inability [Not Recovered/Not Resolved]
  - Knee arthroplasty [Unknown]
